FAERS Safety Report 24710955 (Version 1)
Quarter: 2024Q4

REPORT INFORMATION
  Report Type: Spontaneous
  Country: US (occurrence: None)
  Receive Date: 20241206
  Receipt Date: 20241206
  Transmission Date: 20250115
  Serious: Yes (Death)
  Sender: Public
  Company Number: None

PATIENT
  Age: 80 Year
  Sex: Female

DRUGS (11)
  1. CERDELGA [Suspect]
     Active Substance: ELIGLUSTAT
     Indication: Gaucher^s disease
     Dosage: 84MG BID ORAL?
     Route: 048
     Dates: start: 20191227, end: 20240111
  2. CIPROFLOXACIN [Concomitant]
     Active Substance: CIPROFLOXACIN
  3. BISACODYL [Concomitant]
     Active Substance: BISACODYL
  4. surgilube [Concomitant]
  5. ATROPINE [Concomitant]
     Active Substance: ATROPINE
  6. HALDOL [Concomitant]
     Active Substance: HALOPERIDOL
  7. LISINOPRIL [Concomitant]
     Active Substance: LISINOPRIL
  8. ARIPIPRAZOLE [Concomitant]
     Active Substance: ARIPIPRAZOLE
  9. AMLODIPINE [Concomitant]
     Active Substance: AMLODIPINE BESYLATE
  10. VENLAFAXINE [Concomitant]
     Active Substance: VENLAFAXINE HYDROCHLORIDE
  11. acetamiophen [Concomitant]

REACTIONS (3)
  - General physical health deterioration [None]
  - Bedridden [None]
  - Hypophagia [None]

NARRATIVE: CASE EVENT DATE: 20240111
